FAERS Safety Report 6771565-X (Version None)
Quarter: 2010Q2

REPORT INFORMATION
  Report Type: 
  Country: None (occurrence: None)
  Receive Date: 20100616
  Receipt Date: 20100607
  Transmission Date: 20101027
  Serious: Yes (Other)
  Sender: FDA-Public Use
  Company Number: US-ROCHE-708861

PATIENT
  Sex: Female
  Weight: 55.8 kg

DRUGS (3)
  1. PEGINTERFERON ALFA-2A [Suspect]
     Indication: HEPATITIS C
     Dosage: PRE-FILLED SYRINGE
     Route: 065
     Dates: start: 20090828
  2. RIBAVIRIN [Suspect]
     Indication: HEPATITIS C
     Dosage: DIVIDED DOSES
     Route: 065
     Dates: start: 20090828
  3. RIBAVIRIN [Suspect]
     Dosage: DOSE REDUCED
     Route: 065

REACTIONS (1)
  - BASEDOW'S DISEASE [None]
